FAERS Safety Report 25740235 (Version 1)
Quarter: 2025Q3

REPORT INFORMATION
  Report Type: Spontaneous
  Country: US (occurrence: None)
  Receive Date: 20250828
  Receipt Date: 20250828
  Transmission Date: 20251021
  Serious: Yes (Hospitalization)
  Sender: FDA-CTU
  Company Number: None

PATIENT
  Age: 0 Year
  Sex: Male

DRUGS (3)
  1. BCG LIVE [Suspect]
     Active Substance: BCG LIVE
  2. BCG LIVE [Suspect]
     Active Substance: BCG LIVE
  3. PEMBROLIZUMAB [Suspect]
     Active Substance: PEMBROLIZUMAB

REACTIONS (12)
  - Bladder irritation [None]
  - Body temperature decreased [None]
  - Urinary occult blood [None]
  - Urinary tract infection [None]
  - Kidney enlargement [None]
  - Renal mass [None]
  - Nodule [None]
  - Urinary incontinence [None]
  - Post procedural complication [None]
  - Nephrolithiasis [None]
  - Prostatic calcification [None]
  - Bladder injury [None]

NARRATIVE: CASE EVENT DATE: 20240804
